FAERS Safety Report 5449901-6 (Version None)
Quarter: 2007Q3

REPORT INFORMATION
  Report Type: 
  Country: None (occurrence: None)
  Receive Date: 20070907
  Receipt Date: 20070904
  Transmission Date: 20080115
  Serious: Yes (Death)
  Sender: FDA-Public Use
  Company Number: 2007SP002657

PATIENT
  Age: 92 Year
  Sex: Female

DRUGS (3)
  1. LUNESTA [Suspect]
     Indication: INSOMNIA
     Dosage: 2 MG; ORAL
     Route: 048
  2. ANTI-DIABETICS [Concomitant]
  3. INSULIN [Concomitant]

REACTIONS (7)
  - ANGER [None]
  - DIABETIC COMPLICATION [None]
  - HIP FRACTURE [None]
  - HOSTILITY [None]
  - IRRITABILITY [None]
  - MULTI-ORGAN FAILURE [None]
  - WRIST FRACTURE [None]
